FAERS Safety Report 12503995 (Version 1)
Quarter: 2016Q2

REPORT INFORMATION
  Report Type: Spontaneous
  Country: AU (occurrence: AU)
  Receive Date: 20160628
  Receipt Date: 20160628
  Transmission Date: 20160815
  Serious: Yes (Hospitalization, Other)
  Sender: FDA-Public Use
  Company Number: AU-PFIZER INC-2016317965

PATIENT
  Age: 53 Year
  Sex: Female

DRUGS (4)
  1. LEUCOVORIN /00566701/ [Concomitant]
     Active Substance: LEUCOVORIN
     Indication: RECTAL ADENOCARCINOMA
     Dosage: 12 CYCLES, ONE EVERY THREE WEEKS
  2. OXALIPLATIN. [Suspect]
     Active Substance: OXALIPLATIN
     Indication: RECTAL ADENOCARCINOMA
     Dosage: 12 CYCLES, ONE EVERY 3 WEEKS
  3. CAPECITABINE. [Suspect]
     Active Substance: CAPECITABINE
     Indication: RECTAL ADENOCARCINOMA
     Dosage: TWICE A DAY FOR EIGHT CYCLES, NEOADJUVANT LONG COURSE, ADJUVANT THERAPY
  4. FLUOROURACIL. [Concomitant]
     Active Substance: FLUOROURACIL
     Indication: RECTAL ADENOCARCINOMA
     Dosage: 12 CYCLES, ONE EVERY THREE WEEKS

REACTIONS (3)
  - Second primary malignancy [Recovered/Resolved]
  - Myelofibrosis [Recovered/Resolved]
  - Acute promyelocytic leukaemia [Recovered/Resolved]

NARRATIVE: CASE EVENT DATE: 201404
